FAERS Safety Report 22084665 (Version 1)
Quarter: 2023Q1

REPORT INFORMATION
  Report Type: Spontaneous
  Country: US (occurrence: None)
  Receive Date: 20230310
  Receipt Date: 20230310
  Transmission Date: 20230417
  Serious: No
  Sender: FDA-Public Use
  Company Number: None

PATIENT
  Age: 63 Year
  Sex: Female
  Weight: 50.4 kg

DRUGS (2)
  1. ZICAM (HOMEOPATHICS) [Suspect]
     Active Substance: HOMEOPATHICS
     Indication: Nasopharyngitis
     Dosage: FREQUENCY : AS NEEDED;?
     Route: 055
     Dates: start: 20230307, end: 20230309
  2. ZICAM COLD REMEDY RAPIDMELTS [Suspect]
     Active Substance: HOMEOPATHICS\ZINC ACETATE\ZINC GLUCONATE
     Indication: Nasopharyngitis
     Dosage: FREQUENCY : AS NEEDED;?
     Route: 060
     Dates: start: 20230307, end: 20230309

REACTIONS (1)
  - Anosmia [None]

NARRATIVE: CASE EVENT DATE: 20230308
